FAERS Safety Report 12502452 (Version 1)
Quarter: 2016Q2

REPORT INFORMATION
  Report Type: Spontaneous
  Country: GB (occurrence: GB)
  Receive Date: 20160627
  Receipt Date: 20160627
  Transmission Date: 20160815
  Serious: Yes (Other)
  Sender: FDA-Public Use
  Company Number: GB-APOTEX-2016AP009334

PATIENT

DRUGS (2)
  1. PAXIL [Suspect]
     Active Substance: PAROXETINE HYDROCHLORIDE
     Indication: PRODUCT USED FOR UNKNOWN INDICATION
     Dosage: 20 MG, U
     Route: 065
     Dates: start: 19961231
  2. VENLAFAXINE [Concomitant]
     Active Substance: VENLAFAXINE HYDROCHLORIDE
     Indication: PRODUCT USED FOR UNKNOWN INDICATION
     Dosage: 37.5 MG, UNK
     Route: 065
     Dates: start: 19970326

REACTIONS (19)
  - Mood altered [Unknown]
  - Drug withdrawal syndrome [Unknown]
  - Dizziness [Unknown]
  - Hyperhidrosis [Unknown]
  - Aggression [Unknown]
  - Agitation [Unknown]
  - Suicidal ideation [Unknown]
  - Suicide attempt [Unknown]
  - Memory impairment [Unknown]
  - Nausea [Unknown]
  - Vomiting [Unknown]
  - Abnormal dreams [Unknown]
  - Headache [Unknown]
  - Confusional state [Unknown]
  - Disturbance in attention [Unknown]
  - Insomnia [Unknown]
  - Palpitations [Unknown]
  - Influenza [Unknown]
  - Paraesthesia [Unknown]

NARRATIVE: CASE EVENT DATE: 199703
